FAERS Safety Report 7242063-4 (Version None)
Quarter: 2011Q1

REPORT INFORMATION
  Report Type: 
  Country: None (occurrence: None)
  Receive Date: 20110124
  Receipt Date: 20110118
  Transmission Date: 20110831
  Serious: Yes (Other)
  Sender: FDA-Public Use
  Company Number: US-PFIZER INC-2011012321

PATIENT
  Sex: Female
  Weight: 90.703 kg

DRUGS (6)
  1. LOPRESSOR [Concomitant]
     Indication: HYPERTENSION
     Dosage: UNK
  2. LISINOPRIL [Concomitant]
     Indication: HYPERTENSION
     Dosage: UNK
  3. LIPITOR [Suspect]
     Indication: BLOOD CHOLESTEROL INCREASED
     Dosage: 80 MG, DAILY
     Route: 048
     Dates: start: 20101212
  4. CLONIDINE [Concomitant]
     Indication: HYPERTENSION
     Dosage: 0.03 MG, 2X/DAY
  5. DILTIAZEM [Concomitant]
     Indication: HYPERTENSION
     Dosage: 60 MG, DAILY
  6. VITAMIN B-12 [Concomitant]
     Dosage: UNK

REACTIONS (2)
  - DYSPHAGIA [None]
  - CHOKING [None]
